FAERS Safety Report 8249983-2 (Version None)
Quarter: 2012Q2

REPORT INFORMATION
  Report Type: 
  Country: None (occurrence: None)
  Receive Date: 20120402
  Receipt Date: 20120323
  Transmission Date: 20120825
  Serious: Yes (Hospitalization)
  Sender: FDA-Public Use
  Company Number: ES-JNJFOC-20120313220

PATIENT
  Age: 58 Year
  Sex: Male

DRUGS (7)
  1. RISPERDAL CONSTA [Interacting]
     Indication: SCHIZOPHRENIA, PARANOID TYPE
     Route: 030
     Dates: start: 20080101, end: 20120104
  2. CYMBALTA [Concomitant]
     Route: 048
     Dates: end: 20120122
  3. METFORMIN HCL [Concomitant]
     Route: 048
     Dates: end: 20120122
  4. XEPLION [Suspect]
     Indication: SCHIZOPHRENIA, PARANOID TYPE
     Route: 030
     Dates: start: 20120105, end: 20120105
  5. ASPIRIN [Concomitant]
     Route: 048
     Dates: end: 20120122
  6. FLUVASTATIN [Concomitant]
     Route: 048
     Dates: end: 20120122
  7. REPAGLINIDE [Concomitant]
     Route: 048
     Dates: end: 20120122

REACTIONS (2)
  - DRUG INTERACTION [None]
  - CEREBRAL HAEMORRHAGE [None]
